FAERS Safety Report 4837925-9 (Version None)
Quarter: 2005Q4

REPORT INFORMATION
  Report Type: 
  Country: None (occurrence: None)
  Receive Date: 20051128
  Receipt Date: 20051118
  Transmission Date: 20060501
  Serious: Yes (Life-Threatening, Hospitalization)
  Sender: FDA-Public Use
  Company Number: FR-JNJFOC-20051103686

PATIENT
  Age: 58 Year
  Sex: Male

DRUGS (20)
  1. CONTRAMAL [Suspect]
     Route: 065
  2. CONTRAMAL [Suspect]
     Route: 065
  3. AUGMENTIN [Suspect]
     Route: 048
  4. AUGMENTIN [Suspect]
     Route: 048
  5. ARTHROTEC [Suspect]
     Route: 048
  6. ARTHROTEC [Suspect]
     Route: 048
  7. DOLKO [Concomitant]
     Route: 065
  8. TAHOR [Concomitant]
     Route: 065
  9. NOVONORM [Concomitant]
     Route: 065
  10. GLUCOPHAGE [Concomitant]
     Route: 065
  11. COZAAR [Concomitant]
     Route: 065
  12. AMAREL [Concomitant]
     Route: 065
  13. PARIET [Concomitant]
     Route: 065
  14. AZANTAC [Concomitant]
     Route: 065
  15. XATRAL [Concomitant]
     Route: 065
  16. PROPOFOL [Concomitant]
     Route: 065
  17. PROPOFOL [Concomitant]
     Route: 065
  18. PROPOFOL [Concomitant]
     Route: 065
  19. PROPOFOL [Concomitant]
     Route: 065
  20. PROPOFOL [Concomitant]
     Route: 065

REACTIONS (6)
  - ANAL ABSCESS [None]
  - APLASTIC ANAEMIA [None]
  - LUNG DISORDER [None]
  - MYELODYSPLASTIC SYNDROME [None]
  - PANCYTOPENIA [None]
  - PSEUDOMONAL BACTERAEMIA [None]
